FAERS Safety Report 7773573-9 (Version None)
Quarter: 2011Q3

REPORT INFORMATION
  Report Type: 
  Country: None (occurrence: None)
  Receive Date: 20110923
  Receipt Date: 20110909
  Transmission Date: 20111222
  Serious: No
  Sender: FDA-Public Use
  Company Number: US-BIOGENIDEC-2011BI002465

PATIENT
  Age: 29 Year
  Sex: Female

DRUGS (6)
  1. PRENATAL VITAMINS [Concomitant]
  2. VISTARIL [Concomitant]
     Dates: end: 20100801
  3. VITAMIN D [Concomitant]
  4. PEPCID [Concomitant]
     Dates: end: 20100801
  5. TYSABRI [Suspect]
     Indication: MULTIPLE SCLEROSIS
     Route: 042
     Dates: start: 20090926, end: 20100619
  6. PREDNISONE [Concomitant]
     Dates: end: 20100801

REACTIONS (1)
  - PREGNANCY [None]
